FAERS Safety Report 8342210 (Version 5)
Quarter: 2013Q3

REPORT INFORMATION
  Report Type: Spontaneous
  Country: GB (occurrence: GB)
  Receive Date: 20120118
  Receipt Date: 20130927
  Transmission Date: 20140515
  Serious: Yes (Other)
  Sender: FDA-Public Use
  Company Number: PHHY2012GB002004

PATIENT
  Age: 18 Year
  Sex: Female
  Weight: 54 kg

DRUGS (6)
  1. LAMOTRIGINE [Suspect]
     Indication: EPILEPSY
     Dosage: 200 MG, BID
     Route: 048
     Dates: start: 201011
  2. NEXPLANON [Interacting]
     Indication: CONTRACEPTION
     Dosage: 68 MG, UNK
     Route: 059
     Dates: start: 201103
  3. KEPPRA [Suspect]
     Indication: PRODUCT USED FOR UNKNOWN INDICATION
     Route: 065
  4. DOXYCYCLINE [Concomitant]
     Indication: SINUSITIS
     Route: 048
  5. LORATADINE [Concomitant]
     Indication: SEASONAL ALLERGY
     Dosage: 10 MG, QD
     Route: 048
     Dates: start: 201105
  6. LORATADINE [Concomitant]
     Dosage: ONGOING
     Route: 048
     Dates: start: 201105

REACTIONS (2)
  - Epilepsy [Not Recovered/Not Resolved]
  - Drug interaction [Not Recovered/Not Resolved]
